FAERS Safety Report 6848853-1 (Version None)
Quarter: 2010Q3

REPORT INFORMATION
  Report Type: 
  Country: None (occurrence: None)
  Receive Date: 20100716
  Receipt Date: 20071106
  Transmission Date: 20110219
  Serious: No
  Sender: FDA-Public Use
  Company Number: US-PFIZER INC-2007075096

PATIENT
  Sex: Female
  Weight: 58.2 kg

DRUGS (2)
  1. CHANTIX [Suspect]
     Indication: SMOKING CESSATION THERAPY
     Route: 048
     Dates: start: 20070901
  2. LEXAPRO [Concomitant]
     Indication: OESTROGEN REPLACEMENT THERAPY
     Route: 048

REACTIONS (3)
  - ABDOMINAL PAIN UPPER [None]
  - FEELING HOT [None]
  - HOT FLUSH [None]
